FAERS Safety Report 4674572-6 (Version None)
Quarter: 2005Q2

REPORT INFORMATION
  Report Type: 
  Country: None (occurrence: None)
  Receive Date: 20050524
  Receipt Date: 20050504
  Transmission Date: 20051028
  Serious: Yes (Other)
  Sender: FDA-Public Use
  Company Number: USA040157139

PATIENT
  Age: 38 Year
  Sex: Male
  Weight: 89 kg

DRUGS (3)
  1. ZYPREXA [Suspect]
     Indication: MAJOR DEPRESSION
     Dosage: 20 MG/1 DAY
     Dates: start: 20010101, end: 20031101
  2. ZOLOFT [Concomitant]
  3. PAXIL [Concomitant]

REACTIONS (14)
  - ABDOMINAL PAIN UPPER [None]
  - DEPRESSED MOOD [None]
  - DRUG WITHDRAWAL SYNDROME [None]
  - FAECES DISCOLOURED [None]
  - FEELING ABNORMAL [None]
  - HEART RATE INCREASED [None]
  - HEPATIC ENZYME INCREASED [None]
  - HEPATIC FAILURE [None]
  - HEPATOMEGALY [None]
  - INSOMNIA [None]
  - NERVOUSNESS [None]
  - PANCREATIC DISORDER [None]
  - TENSION [None]
  - WEIGHT INCREASED [None]
